FAERS Safety Report 21757007 (Version 2)
Quarter: 2022Q4

REPORT INFORMATION
  Report Type: Spontaneous
  Country: PL (occurrence: None)
  Receive Date: 20221220
  Receipt Date: 20221227
  Transmission Date: 20230112
  Serious: Yes (Hospitalization, Other)
  Sender: FDA-Public Use
  Company Number: 2022A404576

PATIENT
  Age: 77 Year
  Sex: Female

DRUGS (9)
  1. TICAGRELOR [Interacting]
     Active Substance: TICAGRELOR
     Indication: Product used for unknown indication
     Route: 048
  2. ROSUVASTATIN [Interacting]
     Active Substance: ROSUVASTATIN
     Indication: Product used for unknown indication
     Route: 048
  3. BISOPROLOL [Concomitant]
     Active Substance: BISOPROLOL
     Route: 065
  4. ASPIRIN [Concomitant]
     Active Substance: ASPIRIN
     Route: 065
  5. BASAL NPH INSULIN [Concomitant]
     Dosage: AT NIGHT
     Route: 065
  6. METFORMIN [Concomitant]
     Active Substance: METFORMIN HYDROCHLORIDE
     Indication: Type 2 diabetes mellitus
     Route: 065
  7. PANTOPRAZOLE [Concomitant]
     Active Substance: PANTOPRAZOLE
     Route: 065
  8. RAMIPRIL [Concomitant]
     Active Substance: RAMIPRIL
     Route: 065
  9. INSULIN ASPART [Concomitant]
     Active Substance: INSULIN ASPART
     Dosage: 3 TIMES A DAY WITH MEALS
     Route: 065

REACTIONS (2)
  - Drug interaction [Recovered/Resolved]
  - Rhabdomyolysis [Recovering/Resolving]
